FAERS Safety Report 6600613-2 (Version None)
Quarter: 2010Q1

REPORT INFORMATION
  Report Type: 
  Country: None (occurrence: None)
  Receive Date: 20100223
  Receipt Date: 20100223
  Transmission Date: 20100710
  Serious: Yes (Hospitalization, Disabling)
  Sender: FDA-Public Use
  Company Number: None

PATIENT
  Age: 62 Year
  Sex: Male

DRUGS (1)
  1. NPH INSULIN [Suspect]
     Indication: DIABETES MELLITUS
     Dates: start: 19990801, end: 20100115

REACTIONS (3)
  - CERVICAL VERTEBRAL FRACTURE [None]
  - FALL [None]
  - HYPOGLYCAEMIA [None]
